FAERS Safety Report 18747589 (Version 8)
Quarter: 2021Q2

REPORT INFORMATION
  Report Type: Report from Study
  Country: JP (occurrence: JP)
  Receive Date: 20210115
  Receipt Date: 20210407
  Transmission Date: 20210717
  Serious: Yes (Hospitalization)
  Sender: FDA-Public Use
  Company Number: JP-JNJFOC-20210112320

PATIENT
  Age: 51 Year
  Sex: Female
  Weight: 50.2 kg

DRUGS (39)
  1. PLACEBO [Suspect]
     Active Substance: UNSPECIFIED INGREDIENT
     Indication: CROHN^S DISEASE
     Route: 058
     Dates: start: 20200526
  2. LUNESTA [Concomitant]
     Active Substance: ESZOPICLONE
     Indication: INSOMNIA
     Route: 048
     Dates: start: 20200915
  3. KETOPROFEN. [Concomitant]
     Active Substance: KETOPROFEN
     Indication: ARTHRITIS
  4. URSODEXYCHOLIC ACID [Concomitant]
     Indication: HEPATIC FUNCTION ABNORMAL
     Route: 048
     Dates: start: 20200527
  5. LOXOPROFEN [Concomitant]
     Active Substance: LOXOPROFEN
     Indication: ARTHRITIS
  6. XYLOCAINE [Concomitant]
     Active Substance: LIDOCAINE HYDROCHLORIDE
     Indication: ARTHRITIS
     Dosage: ^4.5^
     Dates: start: 20201221
  7. LOXOPROFEN SODIUM [Concomitant]
     Active Substance: LOXOPROFEN SODIUM
     Indication: HEADACHE
  8. LOXOPROFEN SODIUM [Concomitant]
     Active Substance: LOXOPROFEN SODIUM
     Indication: BACK PAIN
  9. LOXOPROFEN SODIUM [Concomitant]
     Active Substance: LOXOPROFEN SODIUM
     Indication: ARTHRITIS
  10. ISOTONIC SODIUM CHLORIDE SOLUTION [Concomitant]
     Active Substance: SODIUM CHLORIDE
     Indication: COMPUTERISED TOMOGRAM
     Route: 042
     Dates: start: 20210104, end: 20210112
  11. BARYTGEN [Concomitant]
     Indication: ENDOSCOPY
     Dosage: ^5^
     Route: 048
     Dates: start: 20210113, end: 20210113
  12. ANETOCAINE [Concomitant]
     Indication: ENDOSCOPY
     Dosage: ^5^
     Route: 048
     Dates: start: 20210113, end: 20210113
  13. CERCINE [Concomitant]
     Active Substance: DIAZEPAM
     Indication: ENDOSCOPY
     Route: 042
     Dates: start: 20210113, end: 20210113
  14. REBAMIPIDE [Concomitant]
     Active Substance: REBAMIPIDE
     Indication: GASTROINTESTINAL DISORDER THERAPY
     Route: 048
     Dates: start: 20200728
  15. REBAMIPIDE [Concomitant]
     Active Substance: REBAMIPIDE
     Route: 048
     Dates: start: 20201012
  16. LUNESTA [Concomitant]
     Active Substance: ESZOPICLONE
     Route: 048
     Dates: start: 20201004
  17. LOXOPROFEN [Concomitant]
     Active Substance: LOXOPROFEN
     Indication: BACK PAIN
     Route: 048
     Dates: start: 20200728
  18. PENTASA [Concomitant]
     Active Substance: MESALAMINE
     Indication: CROHN^S DISEASE
     Route: 048
     Dates: start: 20190827
  19. ISOTONIC SODIUM CHLORIDE SOLUTION [Concomitant]
     Active Substance: SODIUM CHLORIDE
     Route: 042
     Dates: start: 20210113, end: 20210113
  20. MOVIPREP [Concomitant]
     Active Substance: ASCORBIC ACID\POLYETHYLENE GLYCOL 3350\POTASSIUM CHLORIDE\SODIUM ASCORBATE\SODIUM CHLORIDE\SODIUM SULFATE
     Indication: ENDOSCOPY
     Route: 048
     Dates: start: 20210113, end: 20210113
  21. KETOPROFEN. [Concomitant]
     Active Substance: KETOPROFEN
     Indication: BACK PAIN
     Route: 061
     Dates: start: 20200916
  22. SODIUM PICOSULFATE [Concomitant]
     Active Substance: SODIUM PICOSULFATE
     Indication: ENDOSCOPY
     Dosage: ^10^
     Route: 048
     Dates: start: 20210112, end: 20210112
  23. LOXOPROFEN [Concomitant]
     Active Substance: LOXOPROFEN
     Indication: ARTHRITIS
  24. LOXOPROFEN SODIUM [Concomitant]
     Active Substance: LOXOPROFEN SODIUM
     Indication: ARTHRITIS
     Route: 048
     Dates: start: 20201012
  25. VEEN?D [Concomitant]
     Active Substance: DEXTROSE
     Route: 042
     Dates: start: 20210104, end: 20210105
  26. IMURAN [Concomitant]
     Active Substance: AZATHIOPRINE
     Route: 048
     Dates: start: 20191127, end: 20210105
  27. IMURAN [Concomitant]
     Active Substance: AZATHIOPRINE
     Route: 048
     Dates: start: 20210115, end: 20210127
  28. LOXOPROFEN [Concomitant]
     Active Substance: LOXOPROFEN
     Indication: HEADACHE
     Route: 048
     Dates: start: 20201012
  29. KETOPROFEN. [Concomitant]
     Active Substance: KETOPROFEN
     Indication: ARTHRITIS
  30. VEEN?D [Concomitant]
     Active Substance: DEXTROSE
     Indication: HYPOPHAGIA
     Route: 042
     Dates: start: 20210106, end: 20210109
  31. GLUACETO [Concomitant]
     Active Substance: CALCIUM GLUCONATE\DEXTROSE\MAGNESIUM CHLORIDE\POTASSIUM CHLORIDE\POTASSIUM PHOSPHATE, MONOBASIC\SODIUM ACETATE\SODIUM CHLORIDE
     Indication: HYPOPHAGIA
     Route: 042
     Dates: start: 20210106, end: 20210112
  32. GLUACETO [Concomitant]
     Active Substance: CALCIUM GLUCONATE\DEXTROSE\MAGNESIUM CHLORIDE\POTASSIUM CHLORIDE\POTASSIUM PHOSPHATE, MONOBASIC\SODIUM ACETATE\SODIUM CHLORIDE
     Route: 042
     Dates: start: 20210113, end: 20210113
  33. SOLDEM [Concomitant]
     Active Substance: DEXTROSE\POTASSIUM CHLORIDE\SODIUM CHLORIDE\SODIUM LACTATE
     Indication: ENDOSCOPY
     Route: 042
     Dates: start: 20210113, end: 20210113
  34. IMURAN [Concomitant]
     Active Substance: AZATHIOPRINE
     Route: 048
     Dates: start: 20210105
  35. DEXART [Concomitant]
     Active Substance: DEXAMETHASONE SODIUM PHOSPHATE
     Indication: ARTHRITIS
     Dosage: ^0.5^
     Dates: start: 20201221
  36. LOXOPROFEN SODIUM [Concomitant]
     Active Substance: LOXOPROFEN SODIUM
     Indication: ARTHRITIS
     Route: 048
     Dates: start: 20200728
  37. GLUACETO [Concomitant]
     Active Substance: CALCIUM GLUCONATE\DEXTROSE\MAGNESIUM CHLORIDE\POTASSIUM CHLORIDE\POTASSIUM PHOSPHATE, MONOBASIC\SODIUM ACETATE\SODIUM CHLORIDE
     Route: 042
     Dates: start: 20210104, end: 20210105
  38. SOSEGON [Concomitant]
     Active Substance: PENTAZOCINE
     Indication: ENDOSCOPY
     Route: 042
     Dates: start: 20210113, end: 20210113
  39. ISOTONIC SODIUM CHLORIDE SOLUTION [Concomitant]
     Active Substance: SODIUM CHLORIDE
     Route: 042
     Dates: start: 20210104, end: 20210104

REACTIONS (2)
  - Liver abscess [Recovered/Resolved]
  - Bacterial infection [Recovered/Resolved]

NARRATIVE: CASE EVENT DATE: 20210101
